FAERS Safety Report 10186804 (Version 2)
Quarter: 2014Q3

REPORT INFORMATION
  Report Type: Spontaneous
  Country: IT (occurrence: IT)
  Receive Date: 20140521
  Receipt Date: 20140807
  Transmission Date: 20150326
  Serious: Yes (Hospitalization)
  Sender: FDA-Public Use
  Company Number: IT-PFIZER INC-2014137244

PATIENT
  Age: 86 Year
  Sex: Male

DRUGS (6)
  1. TRIATEC [Suspect]
     Active Substance: RAMIPRIL
     Indication: HYPERTENSION
     Dosage: 5 MG, DAILY
     Route: 048
     Dates: start: 20120101, end: 20131115
  2. TAMSULOSIN HYDROCHLORIDE. [Concomitant]
     Active Substance: TAMSULOSIN HYDROCHLORIDE
     Dosage: UNK
     Route: 065
  3. CARDIRENE [Concomitant]
     Active Substance: ASPIRIN DL-LYSINE
     Dosage: UNK
     Route: 065
  4. TRINIPLAS [Concomitant]
     Dosage: UNK
     Route: 065
  5. TRIATEC [Suspect]
     Active Substance: RAMIPRIL
     Indication: HYPERTENSION
  6. LASIX [Suspect]
     Active Substance: FUROSEMIDE
     Dosage: 25 MG, DAILY
     Route: 048
     Dates: start: 20120101, end: 20131115

REACTIONS (2)
  - Renal failure acute [Recovered/Resolved]
  - Dehydration [Recovered/Resolved]

NARRATIVE: CASE EVENT DATE: 20131115
